FAERS Safety Report 24424332 (Version 2)
Quarter: 2024Q4

REPORT INFORMATION
  Report Type: Spontaneous
  Country: US (occurrence: US)
  Receive Date: 20241010
  Receipt Date: 20241023
  Transmission Date: 20250114
  Serious: Yes (Hospitalization, Other)
  Sender: TEVA
  Company Number: US-TEVA-VS-3251441

PATIENT
  Age: 41 Year
  Sex: Female

DRUGS (3)
  1. PRIMIDONE [Suspect]
     Active Substance: PRIMIDONE
     Indication: Hereditary ataxia
     Route: 065
  2. BOTULINUM TOXIN NOS [Suspect]
     Active Substance: BOTULINUM TOXIN NOS
     Indication: Hereditary ataxia
     Dosage: TOTAL 235 UNITS
     Route: 065
  3. LEVETIRACETAM [Suspect]
     Active Substance: LEVETIRACETAM
     Indication: Hereditary ataxia
     Route: 065

REACTIONS (2)
  - Muscular weakness [Unknown]
  - Treatment failure [Unknown]
